FAERS Safety Report 15060601 (Version 2)
Quarter: 2018Q3

REPORT INFORMATION
  Report Type: Spontaneous
  Country: US (occurrence: US)
  Receive Date: 20180625
  Receipt Date: 20180718
  Transmission Date: 20181010
  Serious: No
  Sender: FDA-Public Use
  Company Number: US-PFIZER INC-2018256606

PATIENT
  Age: 62 Year
  Sex: Female

DRUGS (2)
  1. MACROBID [Suspect]
     Active Substance: NITROFURANTOIN\NITROFURANTOIN MONOHYDRATE
     Indication: URINARY TRACT INFECTION
     Dosage: UNK
  2. FLAGYL [Suspect]
     Active Substance: METRONIDAZOLE\METRONIDAZOLE HYDROCHLORIDE
     Indication: URINARY TRACT INFECTION
     Dosage: UNK

REACTIONS (3)
  - Drug hypersensitivity [Unknown]
  - Jaundice [Unknown]
  - Bilirubin urine present [Unknown]
